FAERS Safety Report 7757021-0 (Version None)
Quarter: 2011Q3

REPORT INFORMATION
  Report Type: 
  Country: None (occurrence: None)
  Receive Date: 20110916
  Receipt Date: 20110912
  Transmission Date: 20111222
  Serious: Yes (Other)
  Sender: FDA-Public Use
  Company Number: NL-ALEXION PHARMACEUTICALS INC.-A201101400

PATIENT
  Sex: Male

DRUGS (6)
  1. PANTOPRAZOLE [Concomitant]
     Dosage: 40 MG QD
     Route: 048
  2. FRAXODI [Concomitant]
     Dosage: 11,400 U QD
     Route: 058
     Dates: start: 20110611
  3. SOLIRIS [Suspect]
     Indication: PAROXYSMAL NOCTURNAL HAEMOGLOBINURIA
     Dosage: 600 MG UNK
     Route: 042
     Dates: start: 20100305, end: 20100326
  4. ALENDRONIC ACID [Concomitant]
     Dosage: 70 MG Q WEEK
     Route: 048
  5. SOLIRIS [Suspect]
     Dosage: 900 MG UNK
     Route: 042
     Dates: start: 20100402
  6. FOLIC ACID [Concomitant]
     Dosage: 5 MG QD
     Route: 048
     Dates: start: 20100416

REACTIONS (3)
  - HAEMOGLOBIN DECREASED [None]
  - DYSPNOEA [None]
  - ASTHENIA [None]
